FAERS Safety Report 14602812 (Version 1)
Quarter: 2018Q1

REPORT INFORMATION
  Report Type: Spontaneous
  Country: GR (occurrence: GR)
  Receive Date: 20180306
  Receipt Date: 20180306
  Transmission Date: 20180509
  Serious: Yes (Other)
  Sender: FDA-Public Use
  Company Number: GR-GLENMARK PHARMACEUTICALS-2018GMK032774

PATIENT
  Age: 50 Year
  Sex: Male

DRUGS (10)
  1. SULFAMETHOXAZOLE/TRIMETHOPRIM [Interacting]
     Active Substance: SULFAMETHOXAZOLE\TRIMETHOPRIM
     Indication: URINARY TRACT INFECTION
     Dosage: 1 DF
     Route: 065
  2. LCZ 696 [Interacting]
     Active Substance: SACUBITRIL\VALSARTAN
     Indication: OEDEMA PERIPHERAL
     Dosage: 100 MG, QD
     Route: 065
  3. LCZ 696 [Interacting]
     Active Substance: SACUBITRIL\VALSARTAN
     Indication: DYSPNOEA EXERTIONAL
     Dosage: 50 MG/12 HOURS
     Route: 065
  4. ROSUVASTATIN. [Concomitant]
     Active Substance: ROSUVASTATIN
     Indication: PRODUCT USED FOR UNKNOWN INDICATION
     Dosage: 20 MG, OD
     Route: 065
  5. METFORMIN [Concomitant]
     Active Substance: METFORMIN HYDROCHLORIDE
     Indication: PRODUCT USED FOR UNKNOWN INDICATION
     Dosage: 850 MG, OD
     Route: 065
  6. APIXABAN [Concomitant]
     Active Substance: APIXABAN
     Indication: PRODUCT USED FOR UNKNOWN INDICATION
     Dosage: 10 MG, OD
     Route: 065
  7. FUROSEMIDE. [Concomitant]
     Active Substance: FUROSEMIDE
     Indication: PRODUCT USED FOR UNKNOWN INDICATION
     Dosage: 40 MG/12 HOURS
     Route: 065
  8. CARVEDILOL. [Suspect]
     Active Substance: CARVEDILOL
     Indication: PRODUCT USED FOR UNKNOWN INDICATION
     Dosage: 25 MG
     Route: 065
  9. IBUPROFEN. [Suspect]
     Active Substance: IBUPROFEN
     Indication: OSTEOARTHRITIS
     Dosage: 1200 MG, OCCASIONAL USE
     Route: 065
  10. EPLERENONE. [Suspect]
     Active Substance: EPLERENONE
     Indication: PRODUCT USED FOR UNKNOWN INDICATION
     Dosage: 25 MG
     Route: 065

REACTIONS (2)
  - Drug interaction [Recovered/Resolved]
  - Hyperkalaemia [Recovered/Resolved]
